FAERS Safety Report 6899962-2 (Version None)
Quarter: 2010Q3

REPORT INFORMATION
  Report Type: 
  Country: None (occurrence: None)
  Receive Date: 20100803
  Receipt Date: 20100726
  Transmission Date: 20110219
  Serious: Yes (Hospitalization, Other)
  Sender: FDA-Public Use
  Company Number: JP-NOVOPROD-309986

PATIENT
  Age: 44 Year
  Sex: Female
  Weight: 53 kg

DRUGS (3)
  1. NOVORAPID CHU FLEXPEN [Suspect]
     Indication: TYPE 2 DIABETES MELLITUS
     Dosage: 12-18 U, QD, BEFORE EVERY MEAL
     Route: 058
     Dates: start: 20080630
  2. LEVEMIR [Suspect]
     Indication: TYPE 2 DIABETES MELLITUS
     Dosage: 14 U, QD
     Route: 058
     Dates: start: 20080630, end: 20090613
  3. LANTUS [Concomitant]
     Indication: TYPE 2 DIABETES MELLITUS
     Dosage: 13 U, QD
     Route: 058
     Dates: start: 20090615

REACTIONS (4)
  - ANTI-GAD ANTIBODY POSITIVE [None]
  - ANTI-INSULIN ANTIBODY POSITIVE [None]
  - DIABETIC KETOACIDOSIS [None]
  - LATENT AUTOIMMUNE DIABETES IN ADULTS [None]
